FAERS Safety Report 25180537 (Version 1)
Quarter: 2025Q2

REPORT INFORMATION
  Report Type: Spontaneous
  Country: KR (occurrence: KR)
  Receive Date: 20250409
  Receipt Date: 20250409
  Transmission Date: 20250716
  Serious: Yes (Other)
  Sender: MYLAN
  Company Number: KR-MYLANLABS-2025M1028702

PATIENT
  Age: 64 Year
  Sex: Male
  Weight: 59.65 kg

DRUGS (4)
  1. NEURONTIN [Suspect]
     Active Substance: GABAPENTIN
     Indication: Malignant melanoma
     Dosage: 100 MILLIGRAM, TID (0.33 DAYS)
     Dates: start: 20230116, end: 20230117
  2. NEURONTIN [Suspect]
     Active Substance: GABAPENTIN
     Dosage: 100 MILLIGRAM, TID (0.33 DAYS)
     Route: 065
     Dates: start: 20230116, end: 20230117
  3. NEURONTIN [Suspect]
     Active Substance: GABAPENTIN
     Dosage: 100 MILLIGRAM, TID (0.33 DAYS)
     Route: 065
     Dates: start: 20230116, end: 20230117
  4. NEURONTIN [Suspect]
     Active Substance: GABAPENTIN
     Dosage: 100 MILLIGRAM, TID (0.33 DAYS)
     Dates: start: 20230116, end: 20230117

REACTIONS (5)
  - Syncope [Recovered/Resolved]
  - Hyperhidrosis [Recovered/Resolved]
  - Abdominal pain [Recovered/Resolved]
  - Myalgia [Not Recovered/Not Resolved]
  - Off label use [Unknown]

NARRATIVE: CASE EVENT DATE: 20230116
